FAERS Safety Report 4409950-3 (Version None)
Quarter: 2004Q3

REPORT INFORMATION
  Report Type: 
  Country: None (occurrence: None)
  Receive Date: 20040726
  Receipt Date: 20040713
  Transmission Date: 20050211
  Serious: Yes (Hospitalization)
  Sender: FDA-Public Use
  Company Number: 2004223784GB

PATIENT
  Age: 87 Year
  Sex: Female

DRUGS (6)
  1. CELEBREX [Suspect]
     Indication: OSTEOARTHRITIS
     Dosage: 200 MG, QD, ORAL
     Route: 048
     Dates: start: 20020101, end: 20040613
  2. WARFARIN (WARFARIN) [Suspect]
     Indication: ATRIAL FIBRILLATION
     Dosage: ORAL
     Route: 048
     Dates: start: 20040527, end: 20040613
  3. AMLODIPINE [Concomitant]
  4. DIGOXIN [Concomitant]
  5. FERROUS SULFATE TAB [Concomitant]
  6. PARACETAMOL [Concomitant]

REACTIONS (4)
  - BLOOD CREATININE ABNORMAL [None]
  - GASTROINTESTINAL ULCER HAEMORRHAGE [None]
  - HAEMOGLOBIN DECREASED [None]
  - HELICOBACTER INFECTION [None]
